FAERS Safety Report 8924387 (Version 2)
Quarter: 2013Q1

REPORT INFORMATION
  Report Type: Spontaneous
  Country: US (occurrence: None)
  Receive Date: 20121116
  Receipt Date: 20121128
  Transmission Date: 20140127
  Serious: Yes (Hospitalization)
  Sender: FDA-Public Use
  Company Number: 2012-1296

PATIENT
  Age: 75 Year
  Sex: Male

DRUGS (2)
  1. KYPROLIS [Suspect]
     Indication: PLASMA CELL MYELOMA
     Route: 042
     Dates: start: 20120910
  2. DEXAMETHASONE (DEXAMETHASONE) [Concomitant]

REACTIONS (3)
  - Influenza [None]
  - Loss of consciousness [None]
  - Urinary incontinence [None]
